FAERS Safety Report 20470260 (Version 3)
Quarter: 2022Q1

REPORT INFORMATION
  Report Type: Spontaneous
  Country: US (occurrence: US)
  Receive Date: 20220214
  Receipt Date: 20220224
  Transmission Date: 20220424
  Serious: Yes (Other)
  Sender: FDA-Public Use
  Company Number: US-FOUNDATIONCB-2022-US-002843

PATIENT
  Age: 24 Year
  Sex: Female
  Weight: 44 kg

DRUGS (7)
  1. ANBESOL MAXIMUM STRENGTH LIQUID [Suspect]
     Active Substance: BENZOCAINE
     Indication: Analgesic therapy
     Dosage: SWISH AND SPIT A SMALL AMOUT OF THE PRODUCT AN UNSPECIFIED AMOUNT OF TIMES PER DAY, THEN SWITCH TO S
     Route: 048
     Dates: start: 20220107, end: 20220202
  2. UNSPECIFIED INGREDIENT [Suspect]
     Active Substance: UNSPECIFIED INGREDIENT
     Dosage: SWISHING IN MOUTH AND SWALLOWING
     Route: 048
  3. BENADRYL [Concomitant]
     Active Substance: DIPHENHYDRAMINE HYDROCHLORIDE
  4. CETIRIZINE [Concomitant]
     Active Substance: CETIRIZINE HYDROCHLORIDE
  5. ALLEGRA [Concomitant]
     Active Substance: FEXOFENADINE HYDROCHLORIDE
  6. IBUPROFEN [Concomitant]
     Active Substance: IBUPROFEN
  7. CANNABIS SATIVA SUBSP. INDICA TOP [Concomitant]
     Active Substance: CANNABIS SATIVA SUBSP. INDICA TOP

REACTIONS (20)
  - Altered state of consciousness [Recovered/Resolved]
  - Choking [Recovered/Resolved]
  - Cellulitis [Not Recovered/Not Resolved]
  - Intentional product misuse [Recovered/Resolved]
  - Product label issue [Not Recovered/Not Resolved]
  - Product use in unapproved indication [Recovered/Resolved]
  - Hypersensitivity [Unknown]
  - Tremor [Not Recovered/Not Resolved]
  - Muscle spasms [Not Recovered/Not Resolved]
  - Mental disorder [Not Recovered/Not Resolved]
  - Decreased appetite [Not Recovered/Not Resolved]
  - Infection [Unknown]
  - Tooth disorder [Not Recovered/Not Resolved]
  - Nasal septum deviation [Not Recovered/Not Resolved]
  - Skin disorder [Not Recovered/Not Resolved]
  - Constipation [Not Recovered/Not Resolved]
  - Vomiting [Not Recovered/Not Resolved]
  - Swelling [Not Recovered/Not Resolved]
  - Condition aggravated [Not Recovered/Not Resolved]
  - Oral pain [Not Recovered/Not Resolved]

NARRATIVE: CASE EVENT DATE: 20220101
